FAERS Safety Report 8316385-X (Version None)
Quarter: 2012Q2

REPORT INFORMATION
  Report Type: 
  Country: None (occurrence: None)
  Receive Date: 20120427
  Receipt Date: 20120420
  Transmission Date: 20120825
  Serious: No
  Sender: FDA-Public Use
  Company Number: US-PFIZER INC-2012067379

PATIENT
  Sex: Male
  Weight: 77 kg

DRUGS (4)
  1. ACETYLSALICYLIC ACID [Concomitant]
     Dosage: 81 MG, UNK X 2
  2. ZOCOR [Concomitant]
     Dosage: UNK
  3. FISH OIL [Concomitant]
     Dosage: UNK
  4. SUTENT [Suspect]
     Indication: METASTATIC RENAL CELL CARCINOMA
     Dosage: 50 MG, 1X/DAY CYCLE 4 WEEKS ON AND 2 OFF
     Route: 048
     Dates: start: 20111019

REACTIONS (7)
  - NAUSEA [None]
  - DYSGEUSIA [None]
  - HAIR COLOUR CHANGES [None]
  - PAIN IN EXTREMITY [None]
  - DECREASED APPETITE [None]
  - WEIGHT FLUCTUATION [None]
  - ORAL PAIN [None]
